FAERS Safety Report 6179211-3 (Version None)
Quarter: 2009Q2

REPORT INFORMATION
  Report Type: 
  Country: None (occurrence: None)
  Receive Date: 20090430
  Receipt Date: 20090415
  Transmission Date: 20091009
  Serious: Yes (Other)
  Sender: FDA-Public Use
  Company Number: ISPH-2009-0102

PATIENT
  Age: 77 Year
  Sex: Female

DRUGS (6)
  1. AZASITE [Suspect]
     Indication: BLEPHARITIS
     Dosage: 1 GTT, BID, OPHTHALMIC
     Route: 047
     Dates: start: 20090321, end: 20090321
  2. AZASITE [Suspect]
     Indication: MEIBOMIANITIS
     Dosage: 1 GTT, BID, OPHTHALMIC
     Route: 047
     Dates: start: 20090321, end: 20090321
  3. RESTASIS (CICLOSPORIN) [Concomitant]
  4. FOSAMAX [Concomitant]
  5. MULTIVITAMIN (ZINC) [Concomitant]
  6. SYSTANE (MACROGOL, PROPYLENE GLYCOL) [Concomitant]

REACTIONS (5)
  - CORNEAL EROSION [None]
  - EYE IRRITATION [None]
  - EYE PAIN [None]
  - OCULAR HYPERAEMIA [None]
  - VISUAL ACUITY REDUCED [None]
